FAERS Safety Report 14739763 (Version 1)
Quarter: 2018Q2

REPORT INFORMATION
  Report Type: Spontaneous
  Country: FR (occurrence: FR)
  Receive Date: 20180410
  Receipt Date: 20180410
  Transmission Date: 20180711
  Serious: Yes (Other)
  Sender: FDA-Public Use
  Company Number: FR-MERCK KGAA-2045431

PATIENT
  Age: 43 Year
  Sex: Male

DRUGS (1)
  1. NOVOTHYROX [Suspect]
     Active Substance: LEVOTHYROXINE SODIUM
     Indication: HYPOPITUITARISM

REACTIONS (21)
  - Fatigue [None]
  - Asthenia [Recovering/Resolving]
  - Insomnia [None]
  - Somnolence [None]
  - Lymphocyte count increased [None]
  - Basophil count decreased [None]
  - Brain neoplasm [None]
  - Bradycardia [Recovered/Resolved]
  - Dizziness [None]
  - Gait disturbance [None]
  - Malaise [None]
  - Orthostatic hypotension [Recovered/Resolved]
  - Alopecia [None]
  - Phonophobia [None]
  - Blood thyroid stimulating hormone decreased [None]
  - Palpitations [None]
  - Decreased appetite [None]
  - Depressed mood [None]
  - Eosinophil count decreased [None]
  - Headache [None]
  - Nausea [None]

NARRATIVE: CASE EVENT DATE: 20170320
